FAERS Safety Report 13135878 (Version 1)
Quarter: 2017Q1

REPORT INFORMATION
  Report Type: Spontaneous
  Country: US (occurrence: US)
  Receive Date: 20170120
  Receipt Date: 20170120
  Transmission Date: 20170428
  Serious: Yes (Other)
  Sender: FDA-Public Use
  Company Number: US-ELI_LILLY_AND_COMPANY-US201701005788

PATIENT
  Age: 63 Year
  Sex: Female

DRUGS (4)
  1. TARSUM [Concomitant]
     Active Substance: COAL TAR\SALICYLIC ACID
     Dosage: UNK, UNKNOWN
     Route: 065
  2. TALTZ [Suspect]
     Active Substance: IXEKIZUMAB
     Indication: PSORIASIS
     Dosage: 80 MG, UNKNOWN
     Route: 065
     Dates: start: 20160719
  3. TRIAMCINOLON                       /00031901/ [Concomitant]
     Dosage: UNK, UNKNOWN
     Route: 065
  4. CYCLOSPORINE. [Concomitant]
     Active Substance: CYCLOSPORINE
     Dosage: UNK, UNKNOWN
     Route: 005

REACTIONS (1)
  - Laryngeal neoplasm [Unknown]
